FAERS Safety Report 10674380 (Version 2)
Quarter: 2015Q1

REPORT INFORMATION
  Report Type: Spontaneous
  Country: US (occurrence: US)
  Receive Date: 20141224
  Receipt Date: 20150121
  Transmission Date: 20150720
  Serious: No
  Sender: FDA-Public Use
  Company Number: US-PFIZER INC-2014350629

PATIENT
  Age: 59 Year
  Sex: Female
  Weight: 99.77 kg

DRUGS (9)
  1. RISPERDAL [Concomitant]
     Active Substance: RISPERIDONE
     Dosage: 2 MG, 1X/DAY
     Route: 048
  2. LYRICA [Suspect]
     Active Substance: PREGABALIN
     Indication: PAIN
  3. LYRICA [Suspect]
     Active Substance: PREGABALIN
     Indication: FIBROMYALGIA
     Dosage: 150 MG, 2X/DAY
     Route: 048
     Dates: start: 201308, end: 201411
  4. BENZTROPINE [Concomitant]
     Active Substance: BENZTROPINE
     Dosage: 1 MG, 1X/DAY
  5. LASIX [Concomitant]
     Active Substance: FUROSEMIDE
     Indication: FLUID RETENTION
  6. POTASSIUM [Concomitant]
     Active Substance: POTASSIUM
     Dosage: 20 MEQ, UNK
     Route: 048
  7. OMEPRAZOLE. [Concomitant]
     Active Substance: OMEPRAZOLE
     Dosage: UNK
  8. CELEXA [Concomitant]
     Active Substance: CITALOPRAM HYDROBROMIDE
     Dosage: 40 MG, 1X/DAY
     Route: 048
  9. LASIX [Concomitant]
     Active Substance: FUROSEMIDE
     Indication: OEDEMA
     Dosage: 40 MG, AS NEEDED
     Route: 048

REACTIONS (3)
  - Joint stiffness [Not Recovered/Not Resolved]
  - Pain [Not Recovered/Not Resolved]
  - Muscle tightness [Not Recovered/Not Resolved]

NARRATIVE: CASE EVENT DATE: 20141203
